FAERS Safety Report 5814146-4 (Version None)
Quarter: 2008Q3

REPORT INFORMATION
  Report Type: 
  Country: None (occurrence: None)
  Receive Date: 20080715
  Receipt Date: 20080701
  Transmission Date: 20090109
  Serious: Yes (Hospitalization)
  Sender: FDA-Public Use
  Company Number: 14732

PATIENT
  Age: 68 Year
  Sex: Male

DRUGS (13)
  1. MORPHINE SULFATE [Suspect]
     Indication: PAIN MANAGEMENT
     Dosage: 30 MG BID ORALLY
     Route: 048
     Dates: start: 20080509, end: 20080512
  2. METOPROLOL TARTRATE [Concomitant]
  3. AMLODIPINE [Concomitant]
  4. SIMVASTATIN [Concomitant]
  5. CLONIDINE [Concomitant]
  6. LISONIPRIL [Concomitant]
  7. ASPIRIN [Concomitant]
  8. PAROXETINE HCL [Concomitant]
  9. PANTOPRAZOLE SODIUM [Concomitant]
  10. OXYCODONE HCL [Concomitant]
  11. OXYCODONE HCL [Concomitant]
  12. VANCOMYCIN HCL [Concomitant]
  13. INVANZ [Concomitant]

REACTIONS (5)
  - CONFUSIONAL STATE [None]
  - HALLUCINATION [None]
  - LETHARGY [None]
  - PHARMACEUTICAL PRODUCT COMPLAINT [None]
  - TRANSIENT ISCHAEMIC ATTACK [None]
